FAERS Safety Report 8547224-X (Version None)
Quarter: 2012Q3

REPORT INFORMATION
  Report Type: 
  Country: None (occurrence: None)
  Receive Date: 20120727
  Receipt Date: 20120228
  Transmission Date: 20120928
  Serious: No
  Sender: FDA-Public Use
  Company Number: US-ASTRAZENECA-2012SE13964

PATIENT
  Sex: Male

DRUGS (8)
  1. TRAZODONE HYDROCHLORIDE [Concomitant]
  2. BETA-BLOCKER [Concomitant]
  3. SEROQUEL [Suspect]
     Indication: ANXIETY
     Route: 048
  4. SEROQUEL [Suspect]
     Indication: PALPITATIONS
     Route: 048
  5. XANAX [Concomitant]
  6. SEROQUEL [Suspect]
     Indication: INSOMNIA
     Route: 048
  7. AMBIEN [Concomitant]
  8. VALIUM [Concomitant]

REACTIONS (2)
  - OFF LABEL USE [None]
  - INSOMNIA [None]
